FAERS Safety Report 25912982 (Version 1)
Quarter: 2025Q4

REPORT INFORMATION
  Report Type: Spontaneous
  Country: JP (occurrence: JP)
  Receive Date: 20251013
  Receipt Date: 20251013
  Transmission Date: 20260117
  Serious: Yes (Death, Other)
  Sender: ASTELLAS
  Company Number: JP-GILEAD-2025-0732201

PATIENT
  Age: 68 Year
  Sex: Male

DRUGS (4)
  1. AMPHOTERICIN B [Suspect]
     Active Substance: AMPHOTERICIN B
     Indication: Disseminated cryptococcosis
     Dosage: UNK
     Route: 042
  2. FLUCYTOSINE [Concomitant]
     Active Substance: FLUCYTOSINE
     Indication: Product used for unknown indication
     Route: 065
  3. FLUCYTOSINE [Concomitant]
     Active Substance: FLUCYTOSINE
     Indication: Product used for unknown indication
     Route: 065
  4. FLUCONAZOLE [Concomitant]
     Active Substance: FLUCONAZOLE
     Indication: Product used for unknown indication
     Route: 065

REACTIONS (2)
  - Enteritis [Fatal]
  - Prerenal failure [Fatal]
